FAERS Safety Report 10080871 (Version 1)
Quarter: 2014Q2

REPORT INFORMATION
  Report Type: Spontaneous
  Country: US (occurrence: None)
  Receive Date: 20140415
  Receipt Date: 20140415
  Transmission Date: 20141212
  Serious: Yes (Death, Life-Threatening, Hospitalization)
  Sender: FDA-Public Use
  Company Number: None

PATIENT
  Age: 66 Year
  Sex: Male
  Weight: 66.6 kg

DRUGS (2)
  1. PIPERACILLIN/TAZOBACTAM [Suspect]
     Indication: INFECTION
     Route: 042
     Dates: start: 20140116, end: 20140128
  2. PANTOPRAZOLE [Concomitant]
     Route: 042
     Dates: start: 20140117, end: 20140201

REACTIONS (5)
  - Agitation [None]
  - Clostridium difficile infection [None]
  - Cardiorenal syndrome [None]
  - Pancreatitis [None]
  - Respiratory failure [None]
